FAERS Safety Report 16972404 (Version 1)
Quarter: 2019Q4

REPORT INFORMATION
  Report Type: Spontaneous
  Country: US (occurrence: US)
  Receive Date: 20190912
  Receipt Date: 20190912
  Transmission Date: 20200122
  Serious: Yes (Death)
  Sender: FDA-Public Use
  Company Number: None

PATIENT
  Age: 19 Year
  Sex: Male

DRUGS (10)
  1. SSD CREAM [Concomitant]
     Active Substance: SILVER SULFADIAZINE
  2. PREDNISONE. [Concomitant]
     Active Substance: PREDNISONE
  3. LEVAQUIN [Concomitant]
     Active Substance: LEVOFLOXACIN
  4. TOBRAMYCIN 300MG/5ML [Suspect]
     Active Substance: TOBRAMYCIN
     Indication: BRONCHIECTASIS
     Dosage: ?          OTHER DOSE:300MG/5ML;?
     Route: 048
     Dates: start: 20140205
  5. DOXYCYCLINE. [Concomitant]
     Active Substance: DOXYCYCLINE
  6. FLUCONAZOLE. [Concomitant]
     Active Substance: FLUCONAZOLE
  7. BUDESONIDE. [Concomitant]
     Active Substance: BUDESONIDE
  8. PROAIR HFA [Concomitant]
     Active Substance: ALBUTEROL SULFATE
  9. PENICILLINS [Concomitant]
     Active Substance: PENICILLIN
  10. BIAXIN [Concomitant]
     Active Substance: CLARITHROMYCIN

REACTIONS (1)
  - Death [None]

NARRATIVE: CASE EVENT DATE: 20190825
